FAERS Safety Report 15239498 (Version 3)
Quarter: 2018Q3

REPORT INFORMATION
  Report Type: Spontaneous
  Country: FR (occurrence: FR)
  Receive Date: 20180803
  Receipt Date: 20180903
  Transmission Date: 20181010
  Serious: Yes (Hospitalization)
  Sender: FDA-Public Use
  Company Number: FR-TEVA-2018-FR-934895

PATIENT
  Age: 40 Year
  Sex: Male

DRUGS (5)
  1. BECILAN 250 MG, COMPRIM? S?CABLE [Concomitant]
     Dosage: 1 DOSAGE FORMS DAILY;
     Route: 048
  2. CIPROFLOXACINE [Suspect]
     Active Substance: CIPROFLOXACIN
     Indication: PROPHYLAXIS URINARY TRACT INFECTION
     Dosage: 1500 MILLIGRAM DAILY;
     Route: 048
     Dates: start: 20180601
  3. ATORVASTATINE [Concomitant]
     Active Substance: ATORVASTATIN
     Dosage: 10 MILLIGRAM DAILY;
     Route: 048
  4. KALEORID LP 1000 MG, COMPRIM? ? LIB?RATION PROLONG?E [Concomitant]
     Active Substance: POTASSIUM CHLORIDE
     Dosage: 1 DOSAGE FORMS DAILY;
     Route: 048
  5. ESIDREX [Suspect]
     Active Substance: HYDROCHLOROTHIAZIDE
     Indication: PRODUCT USED FOR UNKNOWN INDICATION
     Dosage: .5 DOSAGE FORMS DAILY;
     Route: 048

REACTIONS (3)
  - Acute kidney injury [Recovering/Resolving]
  - Hypokalaemia [Recovered/Resolved]
  - Hyponatraemia [Recovered/Resolved]

NARRATIVE: CASE EVENT DATE: 20180601
